FAERS Safety Report 4461183-0 (Version None)
Quarter: 2004Q3

REPORT INFORMATION
  Report Type: 
  Country: None (occurrence: None)
  Receive Date: 20040923
  Receipt Date: 20040913
  Transmission Date: 20050211
  Serious: Yes (Other)
  Sender: FDA-Public Use
  Company Number: 2004233665US

PATIENT
  Age: 63 Year
  Sex: Female

DRUGS (7)
  1. CELEBREX [Suspect]
     Indication: OSTEOARTHRITIS
     Dosage: 200 MG, QD, ORAL
     Route: 048
     Dates: start: 20030101
  2. ZOLOFT [Concomitant]
  3. LISINOPRIL [Concomitant]
  4. AMITRIPTYLINE HCL [Concomitant]
  5. VICODIN [Concomitant]
  6. VERAPAMIL [Concomitant]
  7. PRILOSEC [Concomitant]

REACTIONS (4)
  - CATARACT [None]
  - INTRAOCULAR PRESSURE INCREASED [None]
  - PAIN [None]
  - PAIN EXACERBATED [None]
